FAERS Safety Report 6719497-7 (Version None)
Quarter: 2010Q2

REPORT INFORMATION
  Report Type: 
  Country: None (occurrence: None)
  Receive Date: 20100510
  Receipt Date: 20100510
  Transmission Date: 20101027
  Serious: No
  Sender: FDA-Public Use
  Company Number: None

PATIENT
  Sex: Male
  Weight: 99.7913 kg

DRUGS (3)
  1. INVEGA [Suspect]
     Indication: BIPOLAR DISORDER
     Dosage: DAILY PO
     Route: 048
     Dates: start: 20071130, end: 20091130
  2. ZONEGRAN 400MG [Concomitant]
  3. INVEGA [Concomitant]

REACTIONS (1)
  - DRUG HYPERSENSITIVITY [None]
